FAERS Safety Report 9425414 (Version 1)
Quarter: 2013Q3

REPORT INFORMATION
  Report Type: Spontaneous
  Country: US (occurrence: US)
  Receive Date: 20130729
  Receipt Date: 20130729
  Transmission Date: 20140515
  Serious: Yes (Other)
  Sender: FDA-Public Use
  Company Number: US-BAYER-2013-088215

PATIENT
  Age: 27 Year
  Sex: Female

DRUGS (5)
  1. YASMIN [Suspect]
  2. ORAL CONTRACEPTIVE NOS [Concomitant]
  3. CIPRO [Concomitant]
     Indication: GASTROENTERITIS
     Dosage: UNK
     Dates: start: 200602
  4. CIPROFLOXACIN HCL [Concomitant]
     Dosage: 500 MG, UNK
  5. ACETAMINOPHEN W/CODEINE [Concomitant]

REACTIONS (4)
  - Deep vein thrombosis [Recovered/Resolved]
  - Thrombophlebitis superficial [None]
  - Thrombophlebitis superficial [Recovered/Resolved]
  - Phlebitis [None]
